FAERS Safety Report 16118507 (Version 1)
Quarter: 2019Q1

REPORT INFORMATION
  Report Type: Spontaneous
  Country: AU (occurrence: AU)
  Receive Date: 20190326
  Receipt Date: 20190326
  Transmission Date: 20190418
  Serious: Yes (Other)
  Sender: FDA-Public Use
  Company Number: AU-BAYER-2018-161498

PATIENT
  Age: 24 Year
  Sex: Male
  Weight: 117 kg

DRUGS (1)
  1. NEXAVAR [Suspect]
     Active Substance: SORAFENIB
     Indication: ACUTE MYELOID LEUKAEMIA
     Dosage: 400 MG, BID
     Route: 048
     Dates: start: 20180813

REACTIONS (3)
  - Product use in unapproved indication [None]
  - Off label use [None]
  - Bone marrow transplant [None]

NARRATIVE: CASE EVENT DATE: 20180813
